FAERS Safety Report 9616659 (Version 4)
Quarter: 2014Q1

REPORT INFORMATION
  Report Type: Spontaneous
  Country: US (occurrence: US)
  Receive Date: 20131011
  Receipt Date: 20140210
  Transmission Date: 20141002
  Serious: Yes (Other)
  Sender: FDA-Public Use
  Company Number: US-ASTRAZENECA-2013SE68564

PATIENT
  Age: 73 Year
  Sex: Female
  Weight: 63 kg

DRUGS (22)
  1. PRILOSEC OTC [Suspect]
     Indication: DYSPEPSIA
     Route: 048
     Dates: start: 201102, end: 20130805
  2. PRILOSEC OTC [Suspect]
     Indication: GASTROOESOPHAGEAL REFLUX DISEASE
     Route: 048
     Dates: start: 201102, end: 20130805
  3. PRILOSEC OTC [Suspect]
     Indication: DYSPEPSIA
     Route: 048
     Dates: start: 20110331, end: 20130805
  4. PRILOSEC OTC [Suspect]
     Indication: GASTROOESOPHAGEAL REFLUX DISEASE
     Route: 048
     Dates: start: 20110331, end: 20130805
  5. SYNTHROID [Concomitant]
     Indication: THYROID DISORDER
     Route: 048
  6. CEPHALEXIN [Concomitant]
     Indication: BACTERIAL INFECTION
     Route: 048
  7. AMOX TR-K CLV [Concomitant]
  8. PHENAZOPYRIDINE [Concomitant]
     Indication: DYSURIA
     Dosage: 1 TABLET THREE TIMES A DAY, AS NEEDED
     Route: 048
     Dates: start: 20130831
  9. FLUCONAZOLE [Concomitant]
     Indication: VULVOVAGINAL MYCOTIC INFECTION
     Route: 048
  10. CIPROFLOXACIN HCL [Concomitant]
  11. PANTOPRAZOLE SODIUM [Concomitant]
     Indication: PAIN
  12. CITRUCEL [Concomitant]
     Dosage: 1/2 TABLESPOONFULTWO TIMES A DAY
  13. IMODIUM [Concomitant]
     Dosage: 1 AFTER RM
  14. TEMAZEPAM [Concomitant]
     Indication: SLEEP DISORDER
     Dosage: 1 CAPSULE AT BEDTIME AS NEEDED
  15. POTASSIUM CL ER [Concomitant]
     Route: 048
  16. LASIX [Concomitant]
     Route: 048
  17. LASIX [Concomitant]
  18. PYRIDIUM [Concomitant]
     Indication: DYSURIA
     Dosage: 1 TABLET BY MOUTH THREE TIMES A DAY, AS NEEDED
     Route: 048
  19. LANSOPRAZOL-AMOXIL-CLARITHRO [Concomitant]
  20. AMOXICILLIN [Concomitant]
     Route: 048
  21. CLARITHROMYCIN [Concomitant]
     Route: 048
  22. LANSOPRAZOLE [Concomitant]
     Route: 048

REACTIONS (12)
  - Haemorrhage [Not Recovered/Not Resolved]
  - Diarrhoea [Not Recovered/Not Resolved]
  - Vomiting [Not Recovered/Not Resolved]
  - Change of bowel habit [Not Recovered/Not Resolved]
  - Pain [Not Recovered/Not Resolved]
  - Dysphagia [Not Recovered/Not Resolved]
  - Oesophageal ulcer [Not Recovered/Not Resolved]
  - Hiatus hernia [Not Recovered/Not Resolved]
  - Duodenal ulcer [Not Recovered/Not Resolved]
  - Diverticulum [Not Recovered/Not Resolved]
  - Muscle spasms [Not Recovered/Not Resolved]
  - Local swelling [Not Recovered/Not Resolved]
